FAERS Safety Report 7634914-6 (Version None)
Quarter: 2011Q3

REPORT INFORMATION
  Report Type: 
  Country: None (occurrence: None)
  Receive Date: 20110726
  Receipt Date: 20110711
  Transmission Date: 20111222
  Serious: Yes (Hospitalization, Other)
  Sender: FDA-Public Use
  Company Number: PHHY2011US51414

PATIENT
  Sex: Male

DRUGS (4)
  1. CYTOSINE [Concomitant]
     Indication: ACUTE LYMPHOCYTIC LEUKAEMIA
     Dosage: 4 MG, UNK
     Route: 042
     Dates: start: 20110515, end: 20110520
  2. GLEEVEC [Suspect]
     Indication: ACUTE LYMPHOCYTIC LEUKAEMIA
     Dosage: 400 MG, DAILY
     Route: 048
     Dates: start: 20110410
  3. VINCRISTINE [Concomitant]
     Indication: ACUTE LYMPHOCYTIC LEUKAEMIA
     Dosage: 2 MG, UNK
     Route: 042
     Dates: start: 20110515, end: 20110520
  4. DOXORUBICIN HCL [Concomitant]
     Indication: ACUTE LYMPHOCYTIC LEUKAEMIA
     Dosage: 60 MG/ML, UNK
     Route: 042
     Dates: start: 20110515, end: 20110520

REACTIONS (9)
  - ULCER HAEMORRHAGE [None]
  - VOMITING [None]
  - APHAGIA [None]
  - RETCHING [None]
  - FLUID RETENTION [None]
  - PANCYTOPENIA [None]
  - PLATELET COUNT DECREASED [None]
  - GENERALISED OEDEMA [None]
  - DEHYDRATION [None]
